FAERS Safety Report 17962266 (Version 4)
Quarter: 2021Q2

REPORT INFORMATION
  Report Type: Other
  Country: US (occurrence: US)
  Receive Date: 20200630
  Receipt Date: 20210415
  Transmission Date: 20210717
  Serious: Yes (Other)
  Sender: FDA-Public Use
  Company Number: US-ROCHE-2632943

PATIENT
  Sex: Female

DRUGS (15)
  1. LORAZEPAM. [Concomitant]
     Active Substance: LORAZEPAM
  2. XELODA [Suspect]
     Active Substance: CAPECITABINE
     Indication: COLORECTAL CANCER METASTATIC
  3. OXYCODONE [Concomitant]
     Active Substance: OXYCODONE
     Dosage: QID AS NEEDED FOR PAIN
  4. ELIQUIS [Concomitant]
     Active Substance: APIXABAN
     Dosage: 1 P.O ORAL TWICE DAY
     Route: 048
  5. COMPAZINE [Concomitant]
     Active Substance: PROCHLORPERAZINE MALEATE
  6. IBUPROFEN. [Concomitant]
     Active Substance: IBUPROFEN
  7. TRAMADOL. [Concomitant]
     Active Substance: TRAMADOL
     Dosage: 6 TO 8 HOURS AS NEEDED FOR PAIN
  8. XELODA [Suspect]
     Active Substance: CAPECITABINE
     Indication: RECTAL CANCER
     Dosage: 1 TO 7 EVERY 14 DAYS (7 DAYS ON, 7 DAYS OFF)?DATE OF TREATMENT: 22/8/2019? TAKE THREE TABLET BY MOUT
     Route: 048
  9. ELIQUIS [Concomitant]
     Active Substance: APIXABAN
     Dosage: 1 PO TWICE A ADAY
  10. ACETAMINOPHEN. [Concomitant]
     Active Substance: ACETAMINOPHEN
  11. HYDROCODONE [Concomitant]
     Active Substance: HYDROCODONE
  12. LIDOCAINE/PRILOCAINE [Concomitant]
     Active Substance: LIDOCAINE\PRILOCAINE
     Dosage: 2.5% TOPICAL CREAM
  13. AVASTIN [Suspect]
     Active Substance: BEVACIZUMAB
     Indication: RECTAL CANCER
     Route: 065
  14. ACTIVASE [Suspect]
     Active Substance: ALTEPLASE
     Indication: PRODUCT USED FOR UNKNOWN INDICATION
     Route: 065
  15. MAGNESIUM [Concomitant]
     Active Substance: MAGNESIUM

REACTIONS (2)
  - Neoplasm malignant [Unknown]
  - Hepatic cancer [Unknown]
